FAERS Safety Report 14699390 (Version 2)
Quarter: 2023Q1

REPORT INFORMATION
  Report Type: Spontaneous
  Country: FR (occurrence: FR)
  Receive Date: 20180330
  Receipt Date: 20230227
  Transmission Date: 20230418
  Serious: Yes (Congenital Anomaly)
  Sender: FDA-Public Use
  Company Number: FR-SA-2018SA034823

PATIENT

DRUGS (2)
  1. TACROLIMUS [Suspect]
     Active Substance: TACROLIMUS
     Indication: Immunosuppressant drug therapy
     Dosage: 6 MG, QD
     Route: 064
  2. PREDNISONE [Suspect]
     Active Substance: PREDNISONE
     Indication: Immunosuppressant drug therapy
     Dosage: 10 MG, QD
     Route: 064

REACTIONS (10)
  - Foetal exposure during pregnancy [Unknown]
  - Congenital toxoplasmosis [Unknown]
  - Cerebral ventricle dilatation [Unknown]
  - Congenital anomaly [Unknown]
  - Congenital hydrocephalus [Unknown]
  - Congenital central nervous system anomaly [Unknown]
  - Bone disorder [Unknown]
  - Splenomegaly [Unknown]
  - Encephalopathy [Unknown]
  - Thrombocytopenia [Unknown]
